FAERS Safety Report 21748843 (Version 2)
Quarter: 2022Q4

REPORT INFORMATION
  Report Type: Spontaneous
  Country: CZ (occurrence: CZ)
  Receive Date: 20221219
  Receipt Date: 20221219
  Transmission Date: 20230112
  Serious: Yes (Other)
  Sender: FDA-Public Use
  Company Number: CZ-PFIZER INC-PV202200119611

PATIENT
  Age: 17 Year
  Sex: Male

DRUGS (2)
  1. MEROPENEM [Suspect]
     Active Substance: MEROPENEM
     Indication: Urosepsis
     Dosage: UNK
  2. GENTAMICIN [Concomitant]
     Active Substance: GENTAMICIN
     Indication: Urosepsis
     Dosage: UNK

REACTIONS (1)
  - Pathogen resistance [Unknown]
